FAERS Safety Report 20866750 (Version 1)
Quarter: 2022Q2

REPORT INFORMATION
  Report Type: Spontaneous
  Country: US (occurrence: None)
  Receive Date: 20220523
  Receipt Date: 20220523
  Transmission Date: 20220720
  Serious: Yes (Life-Threatening)
  Sender: FDA-Public Use
  Company Number: None

PATIENT
  Age: 36 Year
  Sex: Female
  Weight: 74.8 kg

DRUGS (1)
  1. VENOFER [Suspect]
     Active Substance: IRON SUCROSE
     Indication: Iron deficiency
     Dosage: FREQUENCY : ONCE;?
     Route: 041
     Dates: start: 20220426, end: 20220426

REACTIONS (14)
  - Peripheral swelling [None]
  - Peripheral swelling [None]
  - Urticaria [None]
  - Dizziness [None]
  - Syncope [None]
  - Blood pressure systolic decreased [None]
  - Flank pain [None]
  - Throat irritation [None]
  - Infusion related reaction [None]
  - Flushing [None]
  - Abdominal pain [None]
  - Nausea [None]
  - Anaphylactic reaction [None]
  - Blood creatinine increased [None]

NARRATIVE: CASE EVENT DATE: 20220426
